FAERS Safety Report 9542997 (Version 3)
Quarter: 2014Q1

REPORT INFORMATION
  Report Type: Report from Study
  Country: JP (occurrence: JP)
  Receive Date: 20130923
  Receipt Date: 20140224
  Transmission Date: 20141002
  Serious: Yes (Hospitalization)
  Sender: FDA-Public Use
  Company Number: JP-SANOFI-AVENTIS-2013SA092385

PATIENT
  Age: 71 Year
  Sex: Male
  Weight: 56 kg

DRUGS (28)
  1. THYMOGLOBULINE [Suspect]
     Indication: APLASTIC ANAEMIA
     Dosage: DOSE: 200 MG OVER 12 HOURS; STRENGTH: 25 MG
     Route: 042
     Dates: start: 20130326, end: 20130330
  2. ADONA [Concomitant]
     Indication: HAEMORRHAGIC DIATHESIS
     Dates: start: 20130326, end: 20130417
  3. MUCOSTA [Concomitant]
     Indication: GASTRITIS
     Dates: start: 20130326, end: 20130417
  4. PRIMOBOLAN [Concomitant]
     Indication: APLASTIC ANAEMIA
     Dates: start: 20130326, end: 20130417
  5. ONEALFA [Concomitant]
     Indication: OSTEOPOROSIS
     Dates: start: 20130326, end: 20130417
  6. GLAKAY [Concomitant]
     Indication: OSTEOPOROSIS
     Dates: start: 20130326, end: 20130417
  7. VITAMEDIN CAPSULE [Concomitant]
     Indication: HYPOVITAMINOSIS
     Dates: start: 20130326, end: 20130417
  8. CINAL [Concomitant]
     Indication: HYPOVITAMINOSIS
     Dates: start: 20130326, end: 20130417
  9. BAKTAR [Concomitant]
     Indication: INFECTION PROPHYLAXIS
     Dates: start: 20130326, end: 20130701
  10. NEORAL [Concomitant]
     Indication: APLASTIC ANAEMIA
     Dates: start: 20130326, end: 20130417
  11. CALONAL [Concomitant]
     Indication: PROPHYLAXIS
     Dates: start: 20130326, end: 20130330
  12. DIPHENHYDRAMINE HYDROCHLORIDE [Concomitant]
     Indication: PROPHYLAXIS
     Dates: start: 20130326, end: 20130330
  13. CRAVIT [Concomitant]
     Indication: INFECTION PROPHYLAXIS
     Dates: start: 20130326, end: 20130612
  14. DIFLUCAN [Concomitant]
     Indication: INFECTION PROPHYLAXIS
     Dates: start: 20130326, end: 20130417
  15. ZOVIRAX [Concomitant]
     Indication: INFECTION PROPHYLAXIS
     Dates: start: 20130326, end: 20130417
  16. PURSENNID [Concomitant]
     Indication: CONSTIPATION
     Dates: start: 20130330, end: 20130701
  17. NEXIUM [Concomitant]
     Indication: GASTROOESOPHAGEAL REFLUX DISEASE
     Dates: start: 20130407, end: 20130701
  18. ALLOID [Concomitant]
     Indication: GASTRITIS
     Dates: start: 20130407, end: 20130410
  19. PRIMPERAN [Concomitant]
     Indication: GASTRITIS
     Dates: start: 20130407, end: 20130417
  20. PREDNISOLONE [Concomitant]
     Indication: PROPHYLAXIS
     Dates: start: 20130408, end: 20130419
  21. MIYA-BM [Concomitant]
     Indication: GASTRITIS
     Dates: start: 20130425, end: 20130701
  22. MYSLEE [Concomitant]
     Indication: INSOMNIA
     Dates: start: 20130522, end: 20130701
  23. MAGLAX [Concomitant]
     Indication: CONSTIPATION
     Dates: start: 20130523, end: 20130605
  24. OMEPRAL [Concomitant]
     Indication: PROPHYLAXIS AGAINST GASTROINTESTINAL ULCER
     Dates: start: 20130416, end: 20130425
  25. NOVORAPID [Concomitant]
     Indication: TYPE 2 DIABETES MELLITUS
     Dates: start: 20130328, end: 20130701
  26. LANTUS INJ SOLOSTAR [Concomitant]
     Indication: TYPE 2 DIABETES MELLITUS
     Dates: start: 20130328, end: 20130701
  27. MIRCERA [Concomitant]
     Indication: NEPHROGENIC ANAEMIA
     Dates: start: 20130325, end: 20130408
  28. SOL-MELCORT [Concomitant]
     Indication: PROPHYLAXIS
     Dates: start: 20130326, end: 20130407

REACTIONS (5)
  - Cerebral haemorrhage [Recovering/Resolving]
  - Pneumonia [Recovering/Resolving]
  - Brain abscess [Recovering/Resolving]
  - Lymphopenia [Not Recovered/Not Resolved]
  - Neutrophil count decreased [Not Recovered/Not Resolved]
